FAERS Safety Report 4655337-8 (Version None)
Quarter: 2005Q2

REPORT INFORMATION
  Report Type: 
  Country: None (occurrence: None)
  Receive Date: 20050331
  Receipt Date: 20040902
  Transmission Date: 20051028
  Serious: No
  Sender: FDA-Public Use
  Company Number: US089615

PATIENT
  Age: 54 Year
  Sex: Female

DRUGS (3)
  1. NEULASTA [Suspect]
     Indication: CHEMOTHERAPY
     Dosage: 6 MG, 1 IN 1 DAYS, SC
     Route: 058
     Dates: start: 20040813
  2. CISPLATIN [Concomitant]
  3. GEMCITABINE HCL [Concomitant]

REACTIONS (1)
  - INJECTION SITE REACTION [None]
